FAERS Safety Report 4929016-3 (Version None)
Quarter: 2006Q1

REPORT INFORMATION
  Report Type: 
  Country: None (occurrence: None)
  Receive Date: 20060301
  Receipt Date: 20060110
  Transmission Date: 20060701
  Serious: Yes (Other)
  Sender: FDA-Public Use
  Company Number: FR-ROCHE-432202

PATIENT
  Age: 21 Year
  Sex: Female
  Weight: 40 kg

DRUGS (1)
  1. CELLCEPT [Suspect]
     Indication: PROPHYLAXIS AGAINST TRANSPLANT REJECTION
     Route: 042
     Dates: start: 20050105

REACTIONS (3)
  - EXTRAVASATION [None]
  - OEDEMA [None]
  - PAIN [None]
